FAERS Safety Report 22272899 (Version 1)
Quarter: 2023Q2

REPORT INFORMATION
  Report Type: Spontaneous
  Country: CA (occurrence: CA)
  Receive Date: 20230502
  Receipt Date: 20230502
  Transmission Date: 20230722
  Serious: Yes (Other)
  Sender: FDA-Public Use
  Company Number: CA-AUROBINDO-AUR-APL-2023-033717

PATIENT
  Age: 38 Year
  Sex: Male

DRUGS (10)
  1. TERBINAFINE [Suspect]
     Active Substance: TERBINAFINE
     Indication: Trichophytosis
     Dosage: 250 MILLIGRAM
     Route: 048
  2. TERBINAFINE [Suspect]
     Active Substance: TERBINAFINE
     Indication: Fungal infection
     Dosage: UNK
     Route: 048
  3. BETAMETHASONE [Suspect]
     Active Substance: BETAMETHASONE
     Indication: Trichophytosis
     Dosage: 0.1 PERCENT
     Route: 061
  4. BETAMETHASONE [Suspect]
     Active Substance: BETAMETHASONE
     Indication: Fungal infection
  5. ITRACONAZOLE [Suspect]
     Active Substance: ITRACONAZOLE
     Indication: Trichophytosis
     Dosage: 100 MILLIGRAM
     Route: 065
  6. ITRACONAZOLE [Suspect]
     Active Substance: ITRACONAZOLE
     Indication: Fungal infection
  7. KETOCONAZOLE [Suspect]
     Active Substance: KETOCONAZOLE
     Indication: Trichophytosis
     Dosage: UNK
     Route: 065
  8. KETOCONAZOLE [Suspect]
     Active Substance: KETOCONAZOLE
     Indication: Fungal infection
  9. TERBINAFINE [Suspect]
     Active Substance: TERBINAFINE
     Indication: Trichophytosis
     Dosage: UNK
     Route: 061
  10. TERBINAFINE [Suspect]
     Active Substance: TERBINAFINE
     Indication: Fungal infection

REACTIONS (3)
  - Rash [Unknown]
  - Fungal infection [Unknown]
  - Drug ineffective [Unknown]
